FAERS Safety Report 9479105 (Version 2)
Quarter: 2013Q4

REPORT INFORMATION
  Report Type: Spontaneous
  Country: US (occurrence: US)
  Receive Date: 20130827
  Receipt Date: 20131029
  Transmission Date: 20140711
  Serious: Yes (Other)
  Sender: FDA-Public Use
  Company Number: US-GLAXOSMITHKLINE-A1039221A

PATIENT
  Age: 58 Year
  Sex: Male

DRUGS (2)
  1. VOTRIENT [Suspect]
     Indication: RENAL CELL CARCINOMA
     Dosage: 800MG PER DAY
     Route: 048
     Dates: start: 20120730, end: 20130816
  2. INLYTA [Suspect]
     Indication: RENAL CELL CARCINOMA
     Dosage: 5MG UNKNOWN
     Route: 065
     Dates: start: 20130816

REACTIONS (2)
  - Renal cell carcinoma [Unknown]
  - Drug ineffective [Unknown]
